FAERS Safety Report 17426246 (Version 1)
Quarter: 2020Q1

REPORT INFORMATION
  Report Type: Spontaneous
  Country: IT (occurrence: IT)
  Receive Date: 20200218
  Receipt Date: 20200218
  Transmission Date: 20200409
  Serious: Yes (Hospitalization)
  Sender: FDA-Public Use
  Company Number: IT-ACCORD-173004

PATIENT
  Age: 54 Year
  Sex: Male

DRUGS (3)
  1. DELORAZEPAM [Suspect]
     Active Substance: DELORAZEPAM
     Indication: ANXIETY
     Route: 048
     Dates: start: 20190101, end: 20190117
  2. VALPROIC ACID. [Concomitant]
     Active Substance: VALPROIC ACID
  3. ARIPIPRAZOLE. [Suspect]
     Active Substance: ARIPIPRAZOLE
     Indication: PSYCHOTIC DISORDER
     Route: 048
     Dates: start: 20190101, end: 20200117

REACTIONS (2)
  - Hypotension [Unknown]
  - Sopor [Unknown]

NARRATIVE: CASE EVENT DATE: 20200111
